FAERS Safety Report 21468590 (Version 3)
Quarter: 2022Q4

REPORT INFORMATION
  Report Type: Report from Study
  Country: US (occurrence: US)
  Receive Date: 20221017
  Receipt Date: 20221122
  Transmission Date: 20230113
  Serious: Yes (Hospitalization, Other)
  Sender: FDA-Public Use
  Company Number: US-ABBVIE-4155677

PATIENT
  Sex: Female
  Weight: 52 kg

DRUGS (10)
  1. SKYRIZI [Suspect]
     Active Substance: RISANKIZUMAB-RZAA
     Indication: Crohn^s disease
     Route: 042
     Dates: start: 20221012
  2. SKYRIZI [Suspect]
     Active Substance: RISANKIZUMAB-RZAA
     Indication: Crohn^s disease
     Route: 042
     Dates: start: 20221015, end: 20221015
  3. COMPAZINE [Concomitant]
     Active Substance: PROCHLORPERAZINE MALEATE
     Indication: Product used for unknown indication
     Dosage: AS NEEDED
  4. IMURAN [Concomitant]
     Active Substance: AZATHIOPRINE
     Indication: Product used for unknown indication
  5. ZOFRAN [Concomitant]
     Active Substance: ONDANSETRON HYDROCHLORIDE
     Indication: Product used for unknown indication
     Dosage: AS NEEDED
  6. NURTEC ODT [Concomitant]
     Active Substance: RIMEGEPANT SULFATE
     Indication: Migraine
     Dosage: AS NEEDED
  7. EPINEPHRINE [Concomitant]
     Active Substance: EPINEPHRINE
     Indication: Product used for unknown indication
  8. PFIZER-BIONTECH COVID-19 VACCINE [Concomitant]
     Active Substance: TOZINAMERAN
     Indication: COVID-19 immunisation
     Dosage: PFIZER
     Route: 030
     Dates: start: 20210430, end: 20210430
  9. PFIZER-BIONTECH COVID-19 VACCINE [Concomitant]
     Active Substance: TOZINAMERAN
     Indication: COVID-19 immunisation
     Dosage: PFIZER
     Route: 030
     Dates: start: 20210521, end: 20210521
  10. METHENAMINE [Concomitant]
     Active Substance: METHENAMINE
     Indication: Product used for unknown indication

REACTIONS (37)
  - Speech disorder [Recovered/Resolved]
  - Ear discomfort [Recovered/Resolved]
  - Chest discomfort [Not Recovered/Not Resolved]
  - Anaphylactic reaction [Recovering/Resolving]
  - Haemoglobin decreased [Unknown]
  - Headache [Unknown]
  - Weight increased [Not Recovered/Not Resolved]
  - Electrolyte imbalance [Unknown]
  - Dizziness [Not Recovered/Not Resolved]
  - Throat irritation [Unknown]
  - Ear discomfort [Unknown]
  - Peripheral swelling [Not Recovered/Not Resolved]
  - Feeling abnormal [Recovered/Resolved]
  - Blood pressure increased [Not Recovered/Not Resolved]
  - Tremor [Unknown]
  - Tremor [Recovered/Resolved]
  - Vertigo [Not Recovered/Not Resolved]
  - Rash erythematous [Recovered/Resolved]
  - Dyspnoea [Not Recovered/Not Resolved]
  - Hypotension [Recovering/Resolving]
  - Nervousness [Not Recovered/Not Resolved]
  - Bone pain [Not Recovered/Not Resolved]
  - Chest pain [Recovered/Resolved]
  - Chest pain [Recovering/Resolving]
  - Abdominal distension [Not Recovered/Not Resolved]
  - Albumin globulin ratio decreased [Unknown]
  - Anion gap decreased [Unknown]
  - Haematocrit decreased [Unknown]
  - Monocyte count decreased [Unknown]
  - Globulins decreased [Unknown]
  - Cough [Not Recovered/Not Resolved]
  - Blood chloride increased [Unknown]
  - Protein total decreased [Unknown]
  - Underdose [Unknown]
  - Electrocardiogram QT prolonged [Not Recovered/Not Resolved]
  - Electrocardiogram abnormal [Unknown]
  - Throat tightness [Recovered/Resolved]

NARRATIVE: CASE EVENT DATE: 20220101
